FAERS Safety Report 9369793 (Version 1)
Quarter: 2013Q2

REPORT INFORMATION
  Report Type: Spontaneous
  Country: US (occurrence: US)
  Receive Date: 20130626
  Receipt Date: 20130626
  Transmission Date: 20140414
  Serious: Yes (Disabling)
  Sender: FDA-Public Use
  Company Number: US-JNJFOC-20130608511

PATIENT
  Sex: Female

DRUGS (2)
  1. TRINESSA [Suspect]
     Indication: HAEMORRHAGE
     Route: 048
  2. TRINESSA [Suspect]
     Indication: MUSCLE SPASMS
     Route: 048

REACTIONS (8)
  - Cerebrovascular accident [Unknown]
  - Headache [Unknown]
  - Dizziness [Unknown]
  - Dyspnoea [Unknown]
  - Conversion disorder [Unknown]
  - Hyperhidrosis [Unknown]
  - Decreased appetite [Unknown]
  - Off label use [Unknown]
